FAERS Safety Report 10731726 (Version 2)
Quarter: 2015Q1

REPORT INFORMATION
  Report Type: Spontaneous
  Country: US (occurrence: US)
  Receive Date: 20150123
  Receipt Date: 20150226
  Transmission Date: 20150721
  Serious: No
  Sender: FDA-Public Use
  Company Number: US-AMGEN INC.-USASP2015005090

PATIENT
  Age: 52 Year
  Sex: Female

DRUGS (3)
  1. PREDNISONE. [Concomitant]
     Active Substance: PREDNISONE
     Dosage: 5 MG, QID, UNK LENGTH OF TIME.
  2. ENBREL [Suspect]
     Active Substance: ETANERCEPT
     Indication: RHEUMATOID ARTHRITIS
     Dosage: 50 MG, QWK
     Route: 065
     Dates: start: 20080922, end: 2013
  3. PLAQUENIL [Concomitant]
     Active Substance: HYDROXYCHLOROQUINE SULFATE
     Dosage: 200 MG, BID, FOR ABOUT 6 MONTHS.

REACTIONS (6)
  - Drug effect decreased [Not Recovered/Not Resolved]
  - Joint swelling [Not Recovered/Not Resolved]
  - Arthralgia [Not Recovered/Not Resolved]
  - Peripheral swelling [Not Recovered/Not Resolved]
  - Pain in extremity [Not Recovered/Not Resolved]
  - Mobility decreased [Not Recovered/Not Resolved]

NARRATIVE: CASE EVENT DATE: 2013
